FAERS Safety Report 25024601 (Version 1)
Quarter: 2025Q1

REPORT INFORMATION
  Report Type: Spontaneous
  Country: US (occurrence: US)
  Receive Date: 20250228
  Receipt Date: 20250228
  Transmission Date: 20250409
  Serious: No
  Sender: MERZ
  Company Number: US-MRZWEB-2025020000166

PATIENT

DRUGS (1)
  1. XEOMIN [Suspect]
     Active Substance: INCOBOTULINUMTOXINA
     Indication: Skin wrinkling

REACTIONS (1)
  - Injection site discolouration [Unknown]

NARRATIVE: CASE EVENT DATE: 20240101
